FAERS Safety Report 5375229-9 (Version None)
Quarter: 2007Q2

REPORT INFORMATION
  Report Type: 
  Country: None (occurrence: None)
  Receive Date: 20070629
  Receipt Date: 20070205
  Transmission Date: 20071010
  Serious: No
  Sender: FDA-Public Use
  Company Number: US-ASTRAZENECA-2006UW28546

PATIENT
  Age: 52 Year
  Sex: Female
  Weight: 58.1 kg

DRUGS (4)
  1. TAMOXIFEN CITRATE [Suspect]
     Indication: BREAST CANCER
     Route: 048
     Dates: start: 19980101, end: 20030101
  2. METHADONE HCL [Concomitant]
     Route: 061
  3. VICODIN [Concomitant]
  4. PROZAC [Concomitant]

REACTIONS (1)
  - POLYP [None]
